FAERS Safety Report 7201405-6 (Version None)
Quarter: 2010Q4

REPORT INFORMATION
  Report Type: 
  Country: None (occurrence: None)
  Receive Date: 20101227
  Receipt Date: 20101227
  Transmission Date: 20110411
  Serious: No
  Sender: FDA-Public Use
  Company Number: None

PATIENT
  Age: 65 Year
  Sex: Female
  Weight: 58.9676 kg

DRUGS (4)
  1. OXYCONTIN [Suspect]
     Indication: FIBROMYALGIA
     Dosage: 20 MG PO
     Route: 048
  2. OXYCONTIN [Suspect]
     Indication: PAIN
     Dosage: 20 MG PO
     Route: 048
  3. OXYCONTIN [Suspect]
     Indication: FIBROMYALGIA
     Dosage: 10 MG PO
     Route: 048
  4. OXYCONTIN [Suspect]
     Indication: PAIN
     Dosage: 10 MG PO
     Route: 048

REACTIONS (6)
  - ABDOMINAL DISCOMFORT [None]
  - DIARRHOEA [None]
  - DRUG EFFECT DECREASED [None]
  - DYSPEPSIA [None]
  - INADEQUATE ANALGESIA [None]
  - PRODUCT FORMULATION ISSUE [None]
